FAERS Safety Report 9701249 (Version 1)
Quarter: 2013Q4

REPORT INFORMATION
  Report Type: Spontaneous
  Country: US (occurrence: US)
  Receive Date: 20131121
  Receipt Date: 20131121
  Transmission Date: 20140711
  Serious: No
  Sender: FDA-Public Use
  Company Number: US-GILEAD-2008-0016185

PATIENT
  Sex: Female
  Weight: 147.42 kg

DRUGS (16)
  1. LETAIRIS [Suspect]
     Indication: PULMONARY ARTERIAL HYPERTENSION
     Route: 048
     Dates: start: 20080328, end: 20080419
  2. SINGULAIR [Concomitant]
     Route: 048
  3. HYZAAR [Concomitant]
     Route: 048
  4. LASIX [Concomitant]
     Route: 048
  5. COUMADIN [Concomitant]
     Route: 048
  6. NORVASC [Concomitant]
     Route: 048
  7. PROVENTIL [Concomitant]
     Route: 048
  8. LOVASTATIN [Concomitant]
     Route: 048
  9. GLIMEPIRIDE [Concomitant]
     Route: 048
  10. DARVOCET [Concomitant]
     Route: 048
  11. FERROUS SULFATE [Concomitant]
     Route: 048
  12. FLUOXETINE [Concomitant]
     Route: 048
  13. VITAMIN A + D [Concomitant]
     Route: 048
  14. ADVAIR [Concomitant]
     Route: 048
  15. METFORMIN [Concomitant]
     Route: 048
  16. VESICARE [Concomitant]
     Route: 048

REACTIONS (2)
  - Dyspnoea [Unknown]
  - Palpitations [Unknown]
